FAERS Safety Report 20921861 (Version 2)
Quarter: 2022Q2

REPORT INFORMATION
  Report Type: Spontaneous
  Country: BR (occurrence: BR)
  Receive Date: 20220607
  Receipt Date: 20220609
  Transmission Date: 20220721
  Serious: Yes (Other)
  Sender: FDA-Public Use
  Company Number: ALC2022BR002652

PATIENT
  Age: 53 Year
  Sex: Female

DRUGS (2)
  1. BRIMONIDINE TARTRATE\BRINZOLAMIDE [Suspect]
     Active Substance: BRIMONIDINE TARTRATE\BRINZOLAMIDE
     Indication: Product used for unknown indication
     Dosage: 5 ML, Q12H (1 DROP IN EACH EYE)
     Route: 065
     Dates: start: 20220514, end: 20220525
  2. TRAVATAN [Suspect]
     Active Substance: TRAVOPROST
     Indication: Product used for unknown indication
     Dosage: UNK
     Route: 065

REACTIONS (14)
  - Presyncope [Unknown]
  - Eye oedema [Recovering/Resolving]
  - Eye swelling [Unknown]
  - Gait disturbance [Unknown]
  - Ocular hyperaemia [Unknown]
  - Conjunctival follicles [Unknown]
  - Conjunctivitis [Unknown]
  - Dizziness [Unknown]
  - Adverse reaction [Unknown]
  - Condition aggravated [Unknown]
  - Lacrimation increased [Unknown]
  - Eye irritation [Recovering/Resolving]
  - Eye pruritus [Unknown]
  - Eye pain [Unknown]

NARRATIVE: CASE EVENT DATE: 20220515
